FAERS Safety Report 7223075-3 (Version None)
Quarter: 2011Q1

REPORT INFORMATION
  Report Type: 
  Country: None (occurrence: None)
  Receive Date: 20110112
  Receipt Date: 20100203
  Transmission Date: 20110831
  Serious: No
  Sender: FDA-Public Use
  Company Number: US-ALLERGAN-0917717US

PATIENT
  Age: 85 Year
  Sex: Female

DRUGS (5)
  1. THYROID TAB [Concomitant]
  2. VITAMIN TAB [Concomitant]
  3. EYEMAX VITAMINS [Concomitant]
     Dosage: UNK
  4. REFRESH TEARS [Concomitant]
  5. RESTASIS [Suspect]
     Indication: DRY EYE
     Dosage: 1 GTT, BID
     Route: 047

REACTIONS (2)
  - EYE PRURITUS [None]
  - EYE PAIN [None]
